FAERS Safety Report 23601891 (Version 1)
Quarter: 2024Q1

REPORT INFORMATION
  Report Type: Spontaneous
  Country: US (occurrence: None)
  Receive Date: 20240306
  Receipt Date: 20240306
  Transmission Date: 20240410
  Serious: Yes (Hospitalization)
  Sender: FDA-Public Use
  Company Number: None

PATIENT
  Age: 8 Year
  Sex: Female
  Weight: 29.7 kg

DRUGS (4)
  1. DUPIXENT [Suspect]
     Active Substance: DUPILUMAB
     Indication: Eczema
     Dates: start: 20231014, end: 20231202
  2. Children^s daily multivitamin [Concomitant]
  3. ZYRTEC [Concomitant]
     Active Substance: CETIRIZINE HYDROCHLORIDE
  4. Daily children probiotic [Concomitant]

REACTIONS (10)
  - Tachycardia [None]
  - Headache [None]
  - Arthralgia [None]
  - Nausea [None]
  - Paraesthesia [None]
  - Paraesthesia [None]
  - Dizziness [None]
  - Flushing [None]
  - Oropharyngeal pain [None]
  - Abdominal pain [None]

NARRATIVE: CASE EVENT DATE: 20231202
